FAERS Safety Report 8918474 (Version 1)
Quarter: 2012Q4

REPORT INFORMATION
  Report Type: 
  Country: US (occurrence: US)
  Receive Date: 20121120
  Receipt Date: 20121120
  Transmission Date: 20130627
  Serious: Yes (Other)
  Sender: FDA-Public Use
  Company Number: US-ROXANE LABORATORIES, INC.-2012-RO-02425RO

PATIENT
  Age: 55 Year
  Sex: Male

DRUGS (6)
  1. CITALOPRAM [Suspect]
     Indication: DEPRESSION
     Dosage: 20 mg
     Route: 048
  2. CITALOPRAM [Suspect]
     Indication: SUICIDAL IDEATION
  3. OMEPRAZOLE [Suspect]
  4. BENAZEPRIL [Suspect]
  5. NIFEDIPINE [Suspect]
  6. WARFARIN [Suspect]

REACTIONS (2)
  - Nightmare [Recovered/Resolved]
  - Anxiety [None]
